FAERS Safety Report 10285329 (Version 1)
Quarter: 2014Q3

REPORT INFORMATION
  Report Type: Spontaneous
  Country: KZ (occurrence: KZ)
  Receive Date: 20140708
  Receipt Date: 20140708
  Transmission Date: 20150326
  Serious: Yes (Other)
  Sender: FDA-Public Use
  Company Number: KZ-B.I. PHARMACEUTICALS,INC./RIDGEFIELD-2014-BI-31274YA

PATIENT
  Age: 81 Year
  Sex: Male
  Weight: 62 kg

DRUGS (1)
  1. TAMSULOSINA [Suspect]
     Active Substance: TAMSULOSIN HYDROCHLORIDE
     Indication: BENIGN PROSTATIC HYPERPLASIA
     Dosage: 0.4 MG
     Route: 048
     Dates: start: 20131030, end: 20140206

REACTIONS (1)
  - Tongue oedema [Recovered/Resolved]

NARRATIVE: CASE EVENT DATE: 20140127
